FAERS Safety Report 5168606-2 (Version None)
Quarter: 2006Q4

REPORT INFORMATION
  Report Type: 
  Country: None (occurrence: None)
  Receive Date: 20061209
  Receipt Date: 20051102
  Transmission Date: 20070319
  Serious: Yes (Life-Threatening, Other)
  Sender: FDA-Public Use
  Company Number: DE-ABBOTT-05P-062-0316195-00

PATIENT
  Sex: Female
  Weight: 75 kg

DRUGS (6)
  1. VALPROATE SODIUM [Suspect]
     Indication: AFFECTIVE DISORDER
     Route: 048
  2. VALPROATE SODIUM [Suspect]
     Indication: DEPRESSION
  3. CIPRALEX FILM-COATED TABLETS [Suspect]
     Indication: DEPRESSION
     Route: 048
  4. CIPRALEX FILM-COATED TABLETS [Suspect]
  5. AMITRIPTYLINE HYDROCHLORIDE [Interacting]
     Indication: DEPRESSION
     Route: 048
  6. OLANZAPINE [Concomitant]
     Indication: DELUSION
     Route: 048

REACTIONS (2)
  - DRUG INTERACTION [None]
  - HYPONATRAEMIA [None]
